FAERS Safety Report 14244430 (Version 2)
Quarter: 2017Q4

REPORT INFORMATION
  Report Type: Spontaneous
  Country: CN (occurrence: CN)
  Receive Date: 20171201
  Receipt Date: 20171222
  Transmission Date: 20180321
  Serious: Yes (Other)
  Sender: FDA-Public Use
  Company Number: CN-BRACCO-2017CN05415

PATIENT
  Age: 47 Year
  Sex: Female

DRUGS (1)
  1. IOPAMIRO [Suspect]
     Active Substance: IOPAMIDOL
     Indication: ANGIOGRAM
     Dosage: 5.0 ML/S
     Route: 042
     Dates: start: 20171109, end: 20171109

REACTIONS (25)
  - Oxygen saturation decreased [Recovered/Resolved]
  - Venous thrombosis limb [Recovered/Resolved]
  - Stress cardiomyopathy [Recovering/Resolving]
  - Hypotension [Recovered/Resolved]
  - Myocardial ischaemia [Recovering/Resolving]
  - Blood disorder [Recovered/Resolved]
  - Hypokalaemia [Recovering/Resolving]
  - Heart rate decreased [Recovered/Resolved]
  - Cerebral venous thrombosis [Recovered/Resolved]
  - Haematemesis [Recovered/Resolved]
  - Syncope [Recovered/Resolved]
  - Axillary vein thrombosis [Recovered/Resolved]
  - Chest discomfort [Recovered/Resolved]
  - Injection site pain [Recovered/Resolved]
  - Burning sensation [Recovered/Resolved]
  - Dracunculiasis [Unknown]
  - Cardiogenic shock [Recovering/Resolving]
  - Loss of consciousness [Recovered/Resolved]
  - Acute myocardial infarction [Recovered/Resolved]
  - Peripheral coldness [Recovering/Resolving]
  - Gastric ulcer haemorrhage [Recovered/Resolved]
  - Unresponsive to stimuli [Recovered/Resolved]
  - Peripheral swelling [Recovering/Resolving]
  - Heart injury [Recovering/Resolving]
  - Pain in extremity [Recovering/Resolving]

NARRATIVE: CASE EVENT DATE: 20171109
